FAERS Safety Report 6521583-1 (Version None)
Quarter: 2009Q4

REPORT INFORMATION
  Report Type: 
  Country: None (occurrence: None)
  Receive Date: 20091230
  Receipt Date: 20091216
  Transmission Date: 20100525
  Serious: Yes (Other)
  Sender: FDA-Public Use
  Company Number: PHHY2009FR56785

PATIENT
  Sex: Male

DRUGS (3)
  1. TEGRETOL [Suspect]
     Indication: TRIGEMINAL NERVE DISORDER
     Dosage: 200 MG DAILY
  2. PYOSTACINE [Concomitant]
     Dosage: 1 DF/DAY
  3. ECONAZOLE NITRATE [Concomitant]
     Dosage: 3 DF/DAY

REACTIONS (3)
  - MOUTH ULCERATION [None]
  - PENILE INFECTION [None]
  - STAPHYLOCOCCAL INFECTION [None]
